FAERS Safety Report 7259118-0 (Version None)
Quarter: 2011Q1

REPORT INFORMATION
  Report Type: 
  Country: None (occurrence: None)
  Receive Date: 20110129
  Receipt Date: 20100810
  Transmission Date: 20110831
  Serious: No
  Sender: FDA-Public Use
  Company Number: US-ABBOTT-10P-163-0663887-00

PATIENT
  Age: 50 Year
  Sex: Female

DRUGS (1)
  1. HUMIRA [Suspect]
     Indication: PSORIATIC ARTHROPATHY
     Dates: start: 20090824

REACTIONS (7)
  - INFECTED SKIN ULCER [None]
  - ANIMAL SCRATCH [None]
  - BLISTER [None]
  - RASH [None]
  - PSORIASIS [None]
  - VARICOSE ULCERATION [None]
  - BACTERIAL INFECTION [None]
